FAERS Safety Report 6117392-8 (Version None)
Quarter: 2009Q1

REPORT INFORMATION
  Report Type: 
  Country: None (occurrence: None)
  Receive Date: 20090314
  Receipt Date: 20090115
  Transmission Date: 20090719
  Serious: No
  Sender: FDA-Public Use
  Company Number: US-ABBOTT-09P-163-0498316-00

PATIENT
  Sex: Female
  Weight: 61.29 kg

DRUGS (7)
  1. HUMIRA [Suspect]
     Indication: CROHN'S DISEASE
     Route: 058
     Dates: start: 20070101
  2. HUMIRA [Suspect]
     Indication: COLITIS ULCERATIVE
  3. TEGRETOL [Concomitant]
     Indication: EPILEPSY
  4. PREDNISONE [Concomitant]
     Indication: ADDISON'S DISEASE
  5. ALBUTEROL [Concomitant]
     Indication: ASTHMA
     Route: 055
  6. FLORINESE [Concomitant]
     Indication: HYPOTENSION
  7. ESTRATEST [Concomitant]
     Indication: HYSTERECTOMY

REACTIONS (2)
  - INCORRECT DOSE ADMINISTERED [None]
  - INJECTION SITE PAIN [None]
